FAERS Safety Report 4452383-4 (Version None)
Quarter: 2004Q3

REPORT INFORMATION
  Report Type: 
  Country: None (occurrence: None)
  Receive Date: 20040917
  Receipt Date: 20040727
  Transmission Date: 20050211
  Serious: Yes (Death, Other)
  Sender: FDA-Public Use
  Company Number: PHBS2004JP10015

PATIENT
  Age: 75 Year
  Sex: Female

DRUGS (10)
  1. RITALIN [Suspect]
     Indication: SOMNOLENCE
     Dosage: 10 MG/D
     Route: 048
     Dates: start: 20040710
  2. RITALIN [Suspect]
     Dosage: 20 MG/D
     Route: 048
     Dates: start: 20040724, end: 20040727
  3. MORPHINE HYDROCHLORIDE [Concomitant]
  4. FENTANYL [Concomitant]
     Indication: CANCER PAIN
     Dosage: 25 MG/D
     Dates: start: 20040622
  5. DIOVAN [Concomitant]
     Indication: HYPERTENSION
     Dosage: 80 MG/D
     Route: 048
     Dates: start: 20040703
  6. PROTECADIN [Concomitant]
     Indication: GASTRIC ULCER
     Dates: start: 20040724
  7. LOXONIN [Concomitant]
     Indication: CANCER PAIN
     Dates: start: 20040724
  8. GANATON [Concomitant]
     Indication: ANOREXIA
     Dosage: 150 MG/D
     Route: 048
     Dates: start: 20040722
  9. RIZE [Concomitant]
     Dosage: 15 MG/D
     Route: 048
     Dates: start: 20040703
  10. NOVAMIN [Concomitant]
     Indication: VOMITING
     Dosage: 15 MG/D
     Route: 048
     Dates: start: 20040703

REACTIONS (10)
  - DEATH [None]
  - DELIRIUM [None]
  - DEPRESSED LEVEL OF CONSCIOUSNESS [None]
  - DIZZINESS [None]
  - MALAISE [None]
  - OXYGEN SATURATION DECREASED [None]
  - SOMNOLENCE [None]
  - SPEECH DISORDER [None]
  - TREMOR [None]
  - VOMITING [None]
